FAERS Safety Report 4944068-2 (Version None)
Quarter: 2006Q1

REPORT INFORMATION
  Report Type: 
  Country: None (occurrence: None)
  Receive Date: 20060315
  Receipt Date: 20050729
  Transmission Date: 20060701
  Serious: Yes (Hospitalization, Other)
  Sender: FDA-Public Use
  Company Number: US-BRISTOL-MYERS SQUIBB COMPANY-13056411

PATIENT
  Age: 73 Year
  Sex: Male

DRUGS (5)
  1. CDDP [Suspect]
     Indication: GASTROOESOPHAGEAL CANCER
     Route: 042
     Dates: start: 20050623, end: 20050623
  2. TS-1 [Suspect]
     Indication: GASTROOESOPHAGEAL CANCER
     Dosage: DC'D AFTER MORNING DOSE ON 12-JUL-05
     Route: 048
     Dates: start: 20050623, end: 20050712
  3. PRILOSEC [Concomitant]
     Indication: DYSPHASIA
     Route: 048
     Dates: start: 20050407
  4. DESERIL [Concomitant]
     Indication: DEPRESSION
     Route: 048
     Dates: start: 19940101
  5. IMODIUM [Concomitant]
     Indication: DIARRHOEA
     Route: 048
     Dates: start: 20041226

REACTIONS (2)
  - CEREBELLAR ATAXIA [None]
  - GENERALISED OEDEMA [None]
